FAERS Safety Report 17575511 (Version 1)
Quarter: 2020Q1

REPORT INFORMATION
  Report Type: Spontaneous
  Country: ES (occurrence: ES)
  Receive Date: 20200324
  Receipt Date: 20200324
  Transmission Date: 20200409
  Serious: Yes (Other)
  Sender: FDA-Public Use
  Company Number: ES-ASTELLAS-2020US003232

PATIENT
  Age: 41 Year
  Sex: Female

DRUGS (2)
  1. BETMIGA [Suspect]
     Active Substance: MIRABEGRON
     Indication: HYPERTONIC BLADDER
     Dosage: UNK UNK, ONCE DAILY
     Route: 065
     Dates: start: 201912
  2. BETMIGA [Suspect]
     Active Substance: MIRABEGRON
     Dosage: UNK UNK, ONCE DAILY
     Route: 065

REACTIONS (3)
  - Tendonitis [Unknown]
  - Diarrhoea [Unknown]
  - Headache [Unknown]
